FAERS Safety Report 8192646-2 (Version None)
Quarter: 2012Q1

REPORT INFORMATION
  Report Type: 
  Country: None (occurrence: None)
  Receive Date: 20120221
  Receipt Date: 20111118
  Transmission Date: 20120608
  Serious: No
  Sender: FDA-Public Use
  Company Number: 1000025629

PATIENT
  Age: 70 Year
  Sex: Female

DRUGS (3)
  1. ACIPHEX (RABEPRAZOLE SODIUM) (RABEPRAZOLE SODIUM) [Concomitant]
  2. PREMARIN (ESTROGENS CONJUGATED) (ESTROGENS CONJUGATED) [Concomitant]
  3. VIIBRYD [Suspect]
     Indication: DEPRESSION
     Dosage: 0 MG (20 MG, 1 IN 1 D),ORAL
     Route: 048
     Dates: start: 20111115

REACTIONS (3)
  - DIZZINESS [None]
  - NAUSEA [None]
  - DIARRHOEA [None]
